FAERS Safety Report 14329503 (Version 2)
Quarter: 2018Q1

REPORT INFORMATION
  Report Type: Spontaneous
  Country: CA (occurrence: CA)
  Receive Date: 20171227
  Receipt Date: 20180130
  Transmission Date: 20180509
  Serious: No
  Sender: FDA-Public Use
  Company Number: CA-MYLANLABS-2017M1080633

PATIENT
  Sex: Female
  Weight: 77.1 kg

DRUGS (5)
  1. ELTROXIN [Concomitant]
     Active Substance: LEVOTHYROXINE
     Indication: PRODUCT USED FOR UNKNOWN INDICATION
     Dosage: 0.1 MG, UNK
  2. NABILONE [Suspect]
     Active Substance: NABILONE
     Indication: ARNOLD-CHIARI MALFORMATION
     Dosage: 1 MG, BID
     Route: 048
  3. GABAPENTIN. [Concomitant]
     Active Substance: GABAPENTIN
     Indication: PRODUCT USED FOR UNKNOWN INDICATION
     Dosage: 400 MG, UNK
  4. NABILONE [Suspect]
     Active Substance: NABILONE
     Indication: NEOPLASM MALIGNANT
  5. LAMICTAL [Concomitant]
     Active Substance: LAMOTRIGINE
     Indication: PRODUCT USED FOR UNKNOWN INDICATION
     Dosage: 150 MG, UNK

REACTIONS (1)
  - Product label issue [Unknown]
